FAERS Safety Report 19470725 (Version 1)
Quarter: 2021Q2

REPORT INFORMATION
  Report Type: Report from Study
  Country: None (occurrence: US)
  Receive Date: 20210629
  Receipt Date: 20210629
  Transmission Date: 20210717
  Serious: Yes (Other)
  Sender: FDA-Public Use
  Company Number: US-ABBVIE-21K-163-3958754-00

PATIENT
  Age: 69 Year
  Sex: Female
  Weight: 56.3 kg

DRUGS (5)
  1. COVID?19 VACCINE [Concomitant]
     Indication: COVID-19 IMMUNISATION
     Dosage: PFIZER, DOSE 1
     Route: 030
     Dates: start: 20210202, end: 20210202
  2. COVID?19 VACCINE [Concomitant]
     Dosage: PFIZER, DOSE 2
     Route: 030
     Dates: start: 20210223, end: 20210223
  3. ASPIRIN. [Concomitant]
     Active Substance: ASPIRIN
     Indication: CARDIOVASCULAR DISORDER
  4. HUMIRA [Suspect]
     Active Substance: ADALIMUMAB
     Indication: UVEITIS
     Dosage: CITRATE FREE
     Route: 058
     Dates: start: 202007, end: 20210603
  5. ENALAPRIL [Concomitant]
     Active Substance: ENALAPRIL
     Indication: HYPERTENSION

REACTIONS (7)
  - Osteoarthritis [Recovering/Resolving]
  - Arthritis [Recovering/Resolving]
  - White blood cell count decreased [Recovered/Resolved]
  - Joint range of motion decreased [Recovering/Resolving]
  - Nerve block [Recovered/Resolved]
  - Cartilage atrophy [Recovering/Resolving]
  - Musculoskeletal disorder [Recovering/Resolving]

NARRATIVE: CASE EVENT DATE: 2021
